FAERS Safety Report 5182226-5 (Version None)
Quarter: 2006Q4

REPORT INFORMATION
  Report Type: 
  Country: None (occurrence: None)
  Receive Date: 20061220
  Receipt Date: 20061209
  Transmission Date: 20070319
  Serious: Yes (Hospitalization)
  Sender: FDA-Public Use
  Company Number: 2006AP05936

PATIENT
  Age: 82 Year
  Sex: Male

DRUGS (2)
  1. ZOLADEX [Suspect]
     Indication: PROSTATE CANCER
     Route: 058
     Dates: start: 20061101
  2. METHYLCOBAL [Suspect]
     Route: 048
     Dates: start: 20061101

REACTIONS (1)
  - RHABDOMYOLYSIS [None]
